FAERS Safety Report 17611826 (Version 1)
Quarter: 2020Q1

REPORT INFORMATION
  Report Type: Spontaneous
  Country: US (occurrence: US)
  Receive Date: 20200330
  Receipt Date: 20200330
  Transmission Date: 20200409
  Serious: No
  Sender: FDA-Public Use
  Company Number: None

PATIENT

DRUGS (3)
  1. DERM7 MELASMA SPOT OFF LIGHTING AND BRIGHTING SKIN MOISTURIZER [Suspect]
     Active Substance: COSMETICS
     Indication: SKIN HYPERPIGMENTATION
  2. DERM 7 ANTI AGING PERFECT RESURFACING CLEANSER [Suspect]
     Active Substance: COSMETICS
  3. DERM7 MELASMA SPOT OFF LIGHTING AND BRIGHTING SKIN MOISTURIZER [Suspect]
     Active Substance: COSMETICS
     Indication: ACNE

REACTIONS (3)
  - Skin texture abnormal [None]
  - Product formulation issue [None]
  - Product complaint [None]
